FAERS Safety Report 4907979-X (Version None)
Quarter: 2006Q1

REPORT INFORMATION
  Report Type: 
  Country: None (occurrence: None)
  Receive Date: 20060210
  Receipt Date: 20041217
  Transmission Date: 20060701
  Serious: Yes (Life-Threatening, Hospitalization, Disabling)
  Sender: FDA-Public Use
  Company Number: 2004PK02160

PATIENT
  Age: 751 Month
  Sex: Female
  Weight: 53 kg

DRUGS (4)
  1. ROSUVASTATIN [Suspect]
     Indication: HYPERCHOLESTEROLAEMIA
     Route: 048
     Dates: start: 20021126, end: 20030217
  2. ROSUVASTATIN [Suspect]
     Route: 048
     Dates: start: 20030218
  3. ROSUVASTATIN [Suspect]
     Route: 048
     Dates: end: 20050308
  4. BLOPRESS [Concomitant]
     Indication: HYPERTENSION
     Route: 048
     Dates: start: 20040714

REACTIONS (1)
  - CEREBRAL HAEMORRHAGE [None]
